FAERS Safety Report 9738586 (Version 1)
Quarter: 2013Q4

REPORT INFORMATION
  Report Type: Spontaneous
  Country: GB (occurrence: GB)
  Receive Date: 20131209
  Receipt Date: 20131209
  Transmission Date: 20140711
  Serious: Yes (Hospitalization)
  Sender: FDA-Public Use
  Company Number: GB-009507513-1312GBR002056

PATIENT
  Age: 49 Year
  Sex: Male

DRUGS (4)
  1. MONTELUKAST SODIUM [Suspect]
     Indication: ASTHMA
     Dosage: 10 MG, 1/1 DAYS
     Route: 048
     Dates: start: 201302, end: 20131030
  2. FLIXOTIDE [Concomitant]
     Indication: ASTHMA
     Dosage: 125 MICROGRAM, 2/ 1DAYS
     Route: 055
  3. PREDNISOLONE [Concomitant]
     Indication: ASTHMA
     Dosage: UNK
     Route: 048
  4. SERETIDE [Concomitant]
     Indication: ASTHMA
     Dosage: 2 DF, 2/1 DAYS
     Route: 055

REACTIONS (1)
  - Allergic granulomatous angiitis [Not Recovered/Not Resolved]
